FAERS Safety Report 9706205 (Version 1)
Quarter: 2013Q4

REPORT INFORMATION
  Report Type: Spontaneous
  Country: IT (occurrence: IT)
  Receive Date: 20131124
  Receipt Date: 20131124
  Transmission Date: 20140711
  Serious: Yes (Death, Hospitalization)
  Sender: FDA-Public Use
  Company Number: IT-INDICUS PHARMA-000111

PATIENT
  Age: 70 Year
  Sex: Female
  Weight: 117 kg

DRUGS (6)
  1. METFORMIN HYDROCHLORIDE [Suspect]
     Indication: TYPE 2 DIABETES MELLITUS
     Dosage: FROM DAY OF ADMISSION, SHE WAS ON METFORMIN(500 MG AT 8AM, 1000 MG AT 1PM AND 1000 MG AT 7PM)
  2. IRBESARTAN [Concomitant]
  3. FUROSEMIDE [Concomitant]
  4. CETRIZINE [Concomitant]
     Indication: PRURITUS
  5. HEPARIN [Concomitant]
     Indication: ANTICOAGULANT THERAPY
  6. INSULIN [Concomitant]
     Indication: TYPE 2 DIABETES MELLITUS
     Dosage: 3 OR MORE TIME AS NECESSARY THEN STOPPED DAY 2 AFTER ADMISSION.

REACTIONS (5)
  - Lactic acidosis [Fatal]
  - Toxicity to various agents [Fatal]
  - Cardio-respiratory arrest [Fatal]
  - Chest pain [Unknown]
  - Hyperkalaemia [Not Recovered/Not Resolved]
